FAERS Safety Report 17439715 (Version 1)
Quarter: 2020Q1

REPORT INFORMATION
  Report Type: Spontaneous
  Country: US (occurrence: US)
  Receive Date: 20200220
  Receipt Date: 20200220
  Transmission Date: 20200409
  Serious: Yes (Congenital Anomaly)
  Sender: FDA-Public Use
  Company Number: US-TAKEDA-2020TUS009717

PATIENT
  Age: 0 Day
  Sex: Female
  Weight: 3.4 kg

DRUGS (7)
  1. IRON [Concomitant]
     Active Substance: IRON
     Dosage: 28 MILLIGRAM, QD
     Route: 048
     Dates: start: 20190221, end: 20190503
  2. BALSALAZIDE DISODIUM. [Concomitant]
     Active Substance: BALSALAZIDE DISODIUM
     Indication: COLITIS ULCERATIVE
     Dosage: 2250 MILLIGRAM, BID
     Route: 048
     Dates: start: 20150701, end: 20190503
  3. PROTONIX                           /00661201/ [Concomitant]
     Active Substance: OMEPRAZOLE
     Indication: GASTROOESOPHAGEAL REFLUX DISEASE
     Dosage: 40 MILLIGRAM, BID
     Route: 048
     Dates: start: 20180802, end: 20190503
  4. DHA [Concomitant]
     Active Substance: DIETARY SUPPLEMENT
     Dosage: 200 MILLIGRAM, QD
     Route: 048
     Dates: start: 20170415, end: 20190503
  5. TDAP IPV [Concomitant]
     Active Substance: DIPHTHERIA AND TETANUS TOXOIDS AND ACELLULAR PERTUSSIS ADSORBED AND INACTIVATED POLIOVIRUS VACCINE
     Dosage: UNK
     Route: 030
     Dates: start: 20190403, end: 20190403
  6. BABY ASPIRIN [Concomitant]
     Active Substance: ASPIRIN
     Indication: FACTOR V LEIDEN MUTATION
     Dosage: 81 MILLIGRAM
     Route: 048
     Dates: start: 20180802, end: 20190415
  7. ENTYVIO [Suspect]
     Active Substance: VEDOLIZUMAB
     Indication: COLITIS ULCERATIVE
     Dosage: 300 MILLIGRAM
     Route: 065
     Dates: start: 20150701, end: 20181003

REACTIONS (2)
  - Foetal exposure during pregnancy [Unknown]
  - Anal stenosis [Unknown]

NARRATIVE: CASE EVENT DATE: 20190503
